FAERS Safety Report 8130836-5 (Version None)
Quarter: 2012Q1

REPORT INFORMATION
  Report Type: 
  Country: None (occurrence: None)
  Receive Date: 20120213
  Receipt Date: 20120207
  Transmission Date: 20120608
  Serious: No
  Sender: FDA-Public Use
  Company Number: US-PFIZER INC-2012033560

PATIENT
  Sex: Male
  Weight: 113.38 kg

DRUGS (1)
  1. NICOTROL [Suspect]
     Indication: SMOKING CESSATION THERAPY
     Dosage: UNK, 4X/DAY
     Route: 045
     Dates: start: 20120202, end: 20120207

REACTIONS (1)
  - DRUG INEFFECTIVE [None]
